FAERS Safety Report 10363946 (Version 3)
Quarter: 2014Q3

REPORT INFORMATION
  Report Type: Spontaneous
  Country: JP (occurrence: None)
  Receive Date: 20140801
  Receipt Date: 20140806
  Transmission Date: 20150326
  Serious: Yes (Hospitalization)
  Sender: FDA-Public Use
  Company Number: SYM-2014-23760

PATIENT
  Age: 53 Year
  Sex: Female

DRUGS (1)
  1. CHOREAZINE (TETRABENAZINE) (12.5 MILLIGRAM, TABLET) (TETRABENAZINE) [Suspect]
     Active Substance: TETRABENAZINE
     Indication: HUNTINGTON^S DISEASE
     Route: 048
     Dates: start: 20140108

REACTIONS (2)
  - Fracture [None]
  - Femur fracture [None]

NARRATIVE: CASE EVENT DATE: 20140719
